FAERS Safety Report 11431961 (Version 1)
Quarter: 2015Q3

REPORT INFORMATION
  Report Type: Spontaneous
  Country: JP (occurrence: JP)
  Receive Date: 20150828
  Receipt Date: 20150828
  Transmission Date: 20151125
  Serious: Yes (Other)
  Sender: FDA-Public Use
  Company Number: JP-GLAXOSMITHKLINE INC.-JP2015GSK123505

PATIENT
  Sex: Female

DRUGS (1)
  1. FLOLAN [Suspect]
     Active Substance: EPOPROSTENOL SODIUM
     Indication: PULMONARY ARTERIAL HYPERTENSION
     Dosage: 34.4 NG/KG, UNK
     Route: 042

REACTIONS (5)
  - Biopsy liver [Unknown]
  - Portal hypertension [Unknown]
  - Hepatosplenomegaly [Unknown]
  - Abdominal distension [Unknown]
  - Hepatic fibrosis [Unknown]
